FAERS Safety Report 10144831 (Version 1)
Quarter: 2014Q2

REPORT INFORMATION
  Report Type: Spontaneous
  Country: US (occurrence: US)
  Receive Date: 20140430
  Receipt Date: 20140430
  Transmission Date: 20141212
  Serious: No
  Sender: FDA-Public Use
  Company Number: US-SA-2014SA010522

PATIENT
  Age: 55 Year
  Sex: Male

DRUGS (2)
  1. ENOXAPARIN SODIUM - WINTHROP [Suspect]
     Indication: THROMBOSIS
     Route: 065
     Dates: start: 20140122
  2. PRADAXA [Concomitant]

REACTIONS (2)
  - Tendon disorder [Not Recovered/Not Resolved]
  - Nodule [Not Recovered/Not Resolved]
